FAERS Safety Report 7131740-1 (Version None)
Quarter: 2010Q4

REPORT INFORMATION
  Report Type: 
  Country: None (occurrence: None)
  Receive Date: 20101202
  Receipt Date: 20101111
  Transmission Date: 20110411
  Serious: Yes (Death, Other)
  Sender: FDA-Public Use
  Company Number: DE-AMGEN-QUU436292

PATIENT

DRUGS (4)
  1. ETANERCEPT [Suspect]
     Indication: RHEUMATOID ARTHRITIS
     Dosage: 50 MG, QWK
     Route: 058
     Dates: start: 20100316
  2. LEFLUNOMIDE [Concomitant]
     Dosage: UNK UNK, UNK
  3. FENTANYL [Concomitant]
     Dosage: UNK UNK, UNK
     Route: 062
  4. PREDNISOLONE [Concomitant]
     Dosage: UNK UNK, UNK

REACTIONS (3)
  - HEPATIC FAILURE [None]
  - PNEUMONIA [None]
  - RENAL FAILURE [None]
